FAERS Safety Report 26108391 (Version 2)
Quarter: 2025Q4

REPORT INFORMATION
  Report Type: Spontaneous
  Country: US (occurrence: US)
  Receive Date: 20251201
  Receipt Date: 20251203
  Transmission Date: 20260117
  Serious: Yes (Hospitalization, Other)
  Sender: BELCHER PHARMACEUTICALS
  Company Number: US-BPI LABS, LLC-2025US004176

PATIENT

DRUGS (4)
  1. SEMAGLUTIDE [Suspect]
     Active Substance: SEMAGLUTIDE
     Indication: Weight control
     Dosage: STRENGTH: 5 MG/2 ML (2.5 MG/ML), DOSE: 8 UNITS, 1/WEEK
     Route: 058
  2. SEMAGLUTIDE [Suspect]
     Active Substance: SEMAGLUTIDE
     Dosage: STRENGTH: 5 MG/2 ML (2.5 MG/ML), DOSE: 16 UNITS, 1/WEEK
     Route: 058
  3. BUPROPION [Concomitant]
     Active Substance: BUPROPION
  4. BUSPIRONE [Concomitant]
     Active Substance: BUSPIRONE HYDROCHLORIDE

REACTIONS (8)
  - Colitis [Unknown]
  - Rectal haemorrhage [Unknown]
  - Abdominal pain upper [Unknown]
  - Constipation [Unknown]
  - Diarrhoea [Unknown]
  - Vomiting [Unknown]
  - Nausea [Unknown]
  - Off label use [Unknown]

NARRATIVE: CASE EVENT DATE: 20250721
